FAERS Safety Report 9518256 (Version 1)
Quarter: 2013Q3

REPORT INFORMATION
  Report Type: Spontaneous
  Country: DE (occurrence: DE)
  Receive Date: 20130912
  Receipt Date: 20130912
  Transmission Date: 20140515
  Serious: Yes (Other)
  Sender: FDA-Public Use
  Company Number: DE-RANBAXY-2013RR-72910

PATIENT
  Age: 50 Year
  Sex: Male

DRUGS (9)
  1. TENOFOVIR [Suspect]
     Indication: ANTIRETROVIRAL THERAPY
     Dosage: UNK
     Route: 065
  2. AMPHOTERICIN B [Suspect]
     Indication: MUCOCUTANEOUS LEISHMANIASIS
     Dosage: 1 MG/KG
     Route: 065
  3. AMPHOTERICIN B [Suspect]
     Dosage: 3 MG/KG
     Route: 065
  4. AMPHOTERICIN B [Suspect]
     Indication: INFECTION PROPHYLAXIS
     Dosage: 3 MG/KG, EVERY 3 WEEKS
     Route: 065
  5. AMPHOTERICIN B [Suspect]
     Dosage: UNK
  6. IBUPROFEN [Suspect]
     Indication: TOOTHACHE
     Dosage: UNK
     Route: 065
  7. EMTRICITABINE [Concomitant]
     Indication: ANTIRETROVIRAL THERAPY
     Dosage: UNK
     Route: 065
  8. RALTEGRAVIR [Concomitant]
     Indication: ANTIRETROVIRAL THERAPY
     Dosage: UNK
     Route: 065
  9. MILTEFOSINE [Concomitant]
     Indication: MUCOCUTANEOUS LEISHMANIASIS
     Dosage: UNK
     Route: 065

REACTIONS (1)
  - Renal failure [Recovered/Resolved]
